FAERS Safety Report 18191586 (Version 1)
Quarter: 2020Q3

REPORT INFORMATION
  Report Type: Spontaneous
  Country: US (occurrence: US)
  Receive Date: 20200825
  Receipt Date: 20200825
  Transmission Date: 20201103
  Serious: No
  Sender: FDA-Public Use
  Company Number: US-CIPLA LTD.-2020US03894

PATIENT

DRUGS (2)
  1. METHYLPREDNISOLONE. [Concomitant]
     Active Substance: METHYLPREDNISOLONE
     Indication: INFLAMMATION
     Dosage: 4 MILLIGRAM, DAILY, FREQUENCY (DAY 1: 6; DAY 2: 5; DAY 3: 4; DAY 4: 3; DAY 5: 2; DAY 6: 1 TABLETS)
     Route: 065
     Dates: start: 20200529
  2. DICLOFENAC [Suspect]
     Active Substance: DICLOFENAC
     Indication: TENDONITIS
     Dosage: 2 GRAM, QID (4 TIMES DAILY)
     Route: 061
     Dates: start: 20200529, end: 2020

REACTIONS (5)
  - Pain [Not Recovered/Not Resolved]
  - Off label use [Not Recovered/Not Resolved]
  - Product use in unapproved indication [Not Recovered/Not Resolved]
  - Discomfort [Not Recovered/Not Resolved]
  - Arthralgia [Not Recovered/Not Resolved]

NARRATIVE: CASE EVENT DATE: 20200529
